FAERS Safety Report 7482620-3 (Version None)
Quarter: 2011Q2

REPORT INFORMATION
  Report Type: 
  Country: None (occurrence: None)
  Receive Date: 20110516
  Receipt Date: 20110504
  Transmission Date: 20111010
  Serious: Yes (Hospitalization, Other)
  Sender: FDA-Public Use
  Company Number: PHHY2011US38071

PATIENT
  Sex: Female

DRUGS (1)
  1. EXJADE [Suspect]
     Indication: NEOPLASM
     Dosage: 1500 MG, QD
     Route: 048
     Dates: start: 20080709

REACTIONS (5)
  - HEPATITIS [None]
  - PYREXIA [None]
  - HEPATIC ENZYME INCREASED [None]
  - MALAISE [None]
  - COMPLEMENT FIXATION TEST POSITIVE [None]
